FAERS Safety Report 4791911-6 (Version None)
Quarter: 2005Q4

REPORT INFORMATION
  Report Type: 
  Country: None (occurrence: None)
  Receive Date: 20051007
  Receipt Date: 20050923
  Transmission Date: 20060501
  Serious: Yes (Other)
  Sender: FDA-Public Use
  Company Number: US-AMGEN-US151753

PATIENT
  Sex: Female

DRUGS (2)
  1. ENBREL [Suspect]
     Indication: RHEUMATOID ARTHRITIS
     Dates: start: 20000101, end: 20050901
  2. METHOTREXATE [Concomitant]
     Route: 048
     Dates: start: 20000101

REACTIONS (6)
  - EYE ALLERGY [None]
  - IRITIS [None]
  - LACRIMATION INCREASED [None]
  - OCULAR HYPERAEMIA [None]
  - UVEITIS [None]
  - VISUAL DISTURBANCE [None]
